FAERS Safety Report 10232616 (Version 1)
Quarter: 2014Q2

REPORT INFORMATION
  Report Type: Spontaneous
  Country: US (occurrence: None)
  Receive Date: 20140506
  Receipt Date: 20140506
  Transmission Date: 20141212
  Serious: Yes (Other)
  Sender: FDA-Public Use
  Company Number: 1223132

PATIENT
  Age: 62 Year
  Sex: Female

DRUGS (5)
  1. AVASTIN [Suspect]
     Indication: COLORECTAL CANCER METASTATIC
     Dosage: UNKNOWN
     Dates: start: 201201, end: 201212
  2. LEUCOVORIN (CALCIUM FOLINATE) [Concomitant]
  3. 5-FU (FLUOROURACIL) [Concomitant]
  4. IRINOTECAN (IRINOTECAN) [Concomitant]
  5. OXALIPLATIN (OXALIPLATIN) [Concomitant]

REACTIONS (1)
  - Female genital tract fistula [None]
